FAERS Safety Report 23626200 (Version 1)
Quarter: 2024Q1

REPORT INFORMATION
  Report Type: Spontaneous
  Country: US (occurrence: None)
  Receive Date: 20240312
  Receipt Date: 20240312
  Transmission Date: 20240409
  Serious: Yes (Hospitalization)
  Sender: FDA-Public Use
  Company Number: None

PATIENT
  Age: 79 Year
  Sex: Female

DRUGS (24)
  1. AMBRISENTAN [Suspect]
     Active Substance: AMBRISENTAN
     Indication: Pulmonary hypertension
     Dosage: FREQUENCY : DAILY;?
     Route: 048
     Dates: start: 20230929
  2. SILDENAFIL [Concomitant]
     Active Substance: SILDENAFIL
  3. POTASSIUM CHLORIDE [Concomitant]
     Active Substance: POTASSIUM CHLORIDE
  4. ALBUTEROL SULFATE [Concomitant]
     Active Substance: ALBUTEROL SULFATE
  5. VORICONAZOLE [Concomitant]
     Active Substance: VORICONAZOLE
  6. GLIPIZIDE [Concomitant]
     Active Substance: GLIPIZIDE
  7. ESTRACE [Concomitant]
     Active Substance: ESTRADIOL
  8. Cromolyn Opht Drop [Concomitant]
  9. ASTELIN [Concomitant]
     Active Substance: AZELASTINE HYDROCHLORIDE
  10. ERYTHROPOIETIN [Concomitant]
     Active Substance: ERYTHROPOIETIN
  11. GABAPENTIN [Concomitant]
     Active Substance: GABAPENTIN
  12. Cyclosporine Opht Drop [Concomitant]
  13. FUROSEMIDE [Concomitant]
     Active Substance: FUROSEMIDE
  14. AZATHIOPRINE [Concomitant]
     Active Substance: AZATHIOPRINE
  15. LEVOTHYROXINE [Concomitant]
     Active Substance: LEVOTHYROXINE\LEVOTHYROXINE SODIUM
  16. PREDNISONE [Concomitant]
     Active Substance: PREDNISONE
  17. ATORVASTATIN [Concomitant]
     Active Substance: ATORVASTATIN
  18. Alvesco HFA [Concomitant]
  19. HUMULIN N [Concomitant]
     Active Substance: INSULIN HUMAN
  20. ACETAMINOPHEN [Concomitant]
     Active Substance: ACETAMINOPHEN
  21. Voltaren top gel [Concomitant]
  22. OMEPRAZOLE [Concomitant]
     Active Substance: OMEPRAZOLE
  23. VITAMIN A [Concomitant]
     Active Substance: VITAMIN A
  24. FLONASE [Concomitant]
     Active Substance: FLUTICASONE PROPIONATE

REACTIONS (3)
  - COVID-19 [None]
  - Acute respiratory failure [None]
  - Interstitial lung disease [None]

NARRATIVE: CASE EVENT DATE: 20240222
